FAERS Safety Report 5776002-X (Version None)
Quarter: 2008Q2

REPORT INFORMATION
  Report Type: 
  Country: None (occurrence: None)
  Receive Date: 20080613
  Receipt Date: 20080607
  Transmission Date: 20081010
  Serious: Yes (Hospitalization)
  Sender: FDA-Public Use
  Company Number: 2008SP011153

PATIENT
  Age: 51 Year
  Sex: Female

DRUGS (2)
  1. PEG-INTRON [Suspect]
     Indication: HEPATITIS C
     Dosage: SC
     Route: 058
     Dates: start: 20080217
  2. REBETOL [Suspect]
     Indication: HEPATITIS C
     Dosage: PO
     Route: 048
     Dates: start: 20080217

REACTIONS (9)
  - ABDOMINAL PAIN UPPER [None]
  - ANAEMIA [None]
  - CONSTIPATION [None]
  - DEHYDRATION [None]
  - DIZZINESS [None]
  - HEADACHE [None]
  - MALAISE [None]
  - SKIN DISCOLOURATION [None]
  - THERAPEUTIC RESPONSE DELAYED [None]
